FAERS Safety Report 4984895-9 (Version None)
Quarter: 2006Q2

REPORT INFORMATION
  Report Type: 
  Country: None (occurrence: None)
  Receive Date: 20060426
  Receipt Date: 20060426
  Transmission Date: 20061013
  Serious: No
  Sender: FDA-Public Use
  Company Number: None

PATIENT
  Age: 6 Month
  Sex: Female

DRUGS (1)
  1. ELIDEL [Suspect]
     Indication: ECZEMA

REACTIONS (3)
  - BODY TEMPERATURE INCREASED [None]
  - DECREASED APPETITE [None]
  - RASH MACULO-PAPULAR [None]
